FAERS Safety Report 23042743 (Version 2)
Quarter: 2023Q4

REPORT INFORMATION
  Report Type: Spontaneous
  Country: AT (occurrence: AT)
  Receive Date: 20231009
  Receipt Date: 20231026
  Transmission Date: 20240110
  Serious: Yes (Hospitalization, Other)
  Sender: FDA-Public Use
  Company Number: AT-GlaxoSmithKline-B0988715A

PATIENT

DRUGS (13)
  1. DICLOFENAC [Suspect]
     Active Substance: DICLOFENAC
     Indication: Pneumonia mycoplasmal
     Dosage: UNK
     Route: 065
     Dates: start: 201009, end: 2010
  2. DICLOFENAC [Suspect]
     Active Substance: DICLOFENAC
     Indication: Antibiotic therapy
  3. CEFUROXIME [Suspect]
     Active Substance: CEFUROXIME
     Indication: Pneumonia mycoplasmal
     Dosage: UNK
     Route: 042
     Dates: start: 201009, end: 2010
  4. CEFUROXIME [Suspect]
     Active Substance: CEFUROXIME
     Indication: Antibiotic therapy
  5. AMOXICILLIN\CLAVULANIC ACID [Suspect]
     Active Substance: AMOXICILLIN\CLAVULANIC ACID
     Indication: Pneumonia mycoplasmal
     Dosage: UNK
     Route: 048
     Dates: start: 201009, end: 2010
  6. AMOXICILLIN\CLAVULANIC ACID [Suspect]
     Active Substance: AMOXICILLIN\CLAVULANIC ACID
     Indication: Antibiotic therapy
  7. CLARITHROMYCIN [Suspect]
     Active Substance: CLARITHROMYCIN
     Indication: Pneumonia mycoplasmal
     Dosage: UNK
     Route: 048
     Dates: start: 201009, end: 2010
  8. CLARITHROMYCIN [Suspect]
     Active Substance: CLARITHROMYCIN
     Indication: Antibiotic therapy
  9. ACETYLCYSTEINE [Suspect]
     Active Substance: ACETYLCYSTEINE
     Indication: Product used for unknown indication
     Dosage: UNK
     Route: 048
     Dates: start: 201009, end: 2010
  10. METAMIZOLE SODIUM [Suspect]
     Active Substance: METAMIZOLE SODIUM
     Indication: Pneumonia mycoplasmal
     Dosage: UNK
     Route: 042
     Dates: start: 201009, end: 2010
  11. PERFALGAN [Suspect]
     Active Substance: ACETAMINOPHEN
     Indication: Pneumonia mycoplasmal
     Dosage: UNK
     Route: 042
     Dates: start: 201009, end: 2010
  12. PERFALGAN [Suspect]
     Active Substance: ACETAMINOPHEN
     Indication: Pyrexia
  13. AMPICILLIN AND SULBACTAM [Suspect]
     Active Substance: AMPICILLIN SODIUM\SULBACTAM SODIUM
     Indication: Antibiotic therapy
     Dosage: UNK
     Route: 065
     Dates: start: 201009, end: 2010

REACTIONS (4)
  - Stevens-Johnson syndrome [Recovering/Resolving]
  - Skin lesion [Recovering/Resolving]
  - Condition aggravated [Recovering/Resolving]
  - Product use in unapproved indication [Unknown]

NARRATIVE: CASE EVENT DATE: 20100901
